FAERS Safety Report 21971562 (Version 2)
Quarter: 2023Q1

REPORT INFORMATION
  Report Type: Report from Study
  Country: US (occurrence: None)
  Receive Date: 20230209
  Receipt Date: 20230227
  Transmission Date: 20230417
  Serious: No
  Sender: FDA-Public Use
  Company Number: US-Merck Healthcare KGaA-9382766

PATIENT
  Sex: Female
  Weight: 98 kg

DRUGS (1)
  1. MAVENCLAD [Suspect]
     Active Substance: CLADRIBINE
     Indication: Multiple sclerosis
     Dosage: YEAR ONE MONTH ONE THERAPY
     Route: 048
     Dates: start: 20230126

REACTIONS (5)
  - Diarrhoea [Unknown]
  - Musculoskeletal pain [Recovering/Resolving]
  - Balance disorder [Recovering/Resolving]
  - Headache [Recovered/Resolved]
  - Back pain [Recovering/Resolving]
